FAERS Safety Report 22247365 (Version 2)
Quarter: 2023Q2

REPORT INFORMATION
  Report Type: Spontaneous
  Country: CA (occurrence: CA)
  Receive Date: 20230425
  Receipt Date: 20230529
  Transmission Date: 20230722
  Serious: Yes (Life-Threatening, Hospitalization, Other)
  Sender: FDA-Public Use
  Company Number: CA-AMGEN-CANSP2023066720

PATIENT
  Age: 27 Year
  Sex: Male

DRUGS (8)
  1. RITUXIMAB [Suspect]
     Active Substance: RITUXIMAB
     Indication: Immune-mediated myositis
     Dosage: 2 GRAM
     Route: 065
  2. RITUXIMAB [Suspect]
     Active Substance: RITUXIMAB
     Dosage: 1.7 GRAM
     Route: 065
  3. METHOTREXATE [Concomitant]
     Active Substance: METHOTREXATE
     Indication: Immune-mediated myositis
     Dosage: UNK
     Route: 065
  4. Immunoglobulin [Concomitant]
     Indication: Immune-mediated myositis
     Dosage: 2 GRAM/KG, QMO
     Route: 042
  5. Immunoglobulin [Concomitant]
     Dosage: 1 GRAM/KG, QMO
     Route: 042
  6. Immunoglobulin [Concomitant]
     Dosage: 0.5 GRAM/KG, QMO
     Route: 042
  7. PREDNISONE [Concomitant]
     Active Substance: PREDNISONE
     Indication: Immune-mediated myositis
     Dosage: 100 MILLIGRAM
  8. DEXAMETHASONE [Concomitant]
     Active Substance: DEXAMETHASONE
     Indication: Immune-mediated myositis
     Dosage: 20 MILLIGRAM
     Route: 065

REACTIONS (7)
  - Immune-mediated myositis [Recovering/Resolving]
  - Vascular device infection [Unknown]
  - Drug ineffective for unapproved indication [Unknown]
  - COVID-19 [Unknown]
  - Off label use [Unknown]
  - Blood immunoglobulin M decreased [Unknown]
  - Blood immunoglobulin A decreased [Unknown]
